FAERS Safety Report 19357378 (Version 1)
Quarter: 2021Q2

REPORT INFORMATION
  Report Type: Spontaneous
  Country: CZ (occurrence: CZ)
  Receive Date: 20210601
  Receipt Date: 20210601
  Transmission Date: 20210717
  Serious: Yes (Other)
  Sender: FDA-Public Use
  Company Number: NVSC2021CZ115603

PATIENT
  Sex: Male

DRUGS (1)
  1. COSENTYX [Suspect]
     Active Substance: SECUKINUMAB
     Indication: PSORIATIC ARTHROPATHY
     Dosage: 300 MG (2 DOSES), QMO
     Route: 065

REACTIONS (3)
  - Dysuria [Not Recovered/Not Resolved]
  - Psoriatic arthropathy [Unknown]
  - Inflammation [Not Recovered/Not Resolved]
